FAERS Safety Report 24428536 (Version 1)
Quarter: 2024Q4

REPORT INFORMATION
  Report Type: Spontaneous
  Country: US (occurrence: None)
  Receive Date: 20241010
  Receipt Date: 20241010
  Transmission Date: 20250115
  Serious: Yes (Death)
  Sender: Public
  Company Number: None

PATIENT
  Sex: Male

DRUGS (10)
  1. TACROLIMUS [Suspect]
     Active Substance: TACROLIMUS
  2. ATOVAQUONE [Suspect]
     Active Substance: ATOVAQUONE
  3. PREVYMIS [Suspect]
     Active Substance: LETERMOVIR
  4. PREDNISONE [Suspect]
     Active Substance: PREDNISONE
  5. BACTRIM [Suspect]
     Active Substance: SULFAMETHOXAZOLE\TRIMETHOPRIM
  6. FAMOTIDINE [Suspect]
     Active Substance: FAMOTIDINE
  7. VITAMIN D3 [Suspect]
     Active Substance: CHOLECALCIFEROL
  8. TRADJENTA [Suspect]
     Active Substance: LINAGLIPTIN
  9. SODIUM BICARBONATE [Suspect]
     Active Substance: SODIUM BICARBONATE
  10. AMIODARONE [Suspect]
     Active Substance: AMIODARONE

REACTIONS (1)
  - Death [None]
